FAERS Safety Report 6182539-4 (Version None)
Quarter: 2009Q2

REPORT INFORMATION
  Report Type: 
  Country: None (occurrence: None)
  Receive Date: 20090507
  Receipt Date: 20090427
  Transmission Date: 20091009
  Serious: Yes (Hospitalization)
  Sender: FDA-Public Use
  Company Number: US-AMGEN-COG341216

PATIENT
  Sex: Female

DRUGS (4)
  1. ENBREL [Suspect]
     Indication: RHEUMATOID ARTHRITIS
     Route: 058
     Dates: start: 20060913
  2. METHOTREXATE [Concomitant]
     Route: 048
     Dates: start: 20051001
  3. HYDROXYCHLOROQUINE SULFATE [Concomitant]
     Dates: start: 20051118, end: 20061101
  4. SULFASALAZINE [Concomitant]
     Dates: end: 20061101

REACTIONS (8)
  - ANKLE FRACTURE [None]
  - COUGH [None]
  - FALL [None]
  - HEADACHE [None]
  - OSTEOPENIA [None]
  - RESPIRATORY TRACT CONGESTION [None]
  - RHINORRHOEA [None]
  - SINUS HEADACHE [None]
